FAERS Safety Report 8213587-8 (Version None)
Quarter: 2012Q1

REPORT INFORMATION
  Report Type: 
  Country: None (occurrence: None)
  Receive Date: 20120315
  Receipt Date: 20120306
  Transmission Date: 20120608
  Serious: Yes (Hospitalization)
  Sender: FDA-Public Use
  Company Number: FR-ASTRAZENECA-2012SE16633

PATIENT
  Sex: Male

DRUGS (7)
  1. RAMIPRIL [Suspect]
     Route: 048
  2. FOLIC ACID [Suspect]
     Route: 048
  3. FUROSEMIDE [Suspect]
     Route: 048
  4. NEXIUM [Suspect]
     Indication: DUODENAL ULCER
     Route: 048
  5. ASPIRIN [Suspect]
     Route: 048
  6. ANAGRELIDE HYDROCHLORIDE [Suspect]
     Indication: ESSENTIAL THROMBOCYTHAEMIA
     Route: 048
     Dates: start: 20080101
  7. NEORECORMON [Suspect]
     Route: 058

REACTIONS (2)
  - ARRHYTHMIA [None]
  - ATRIAL FIBRILLATION [None]
